FAERS Safety Report 7732847-8 (Version None)
Quarter: 2011Q3

REPORT INFORMATION
  Report Type: 
  Country: None (occurrence: None)
  Receive Date: 20110907
  Receipt Date: 20110825
  Transmission Date: 20111222
  Serious: Yes (Other)
  Sender: FDA-Public Use
  Company Number: JP-UCBSA-039108

PATIENT
  Age: 24 Year
  Sex: Male

DRUGS (8)
  1. MUCODYNE [Concomitant]
     Route: 048
  2. TANNALBIN [Concomitant]
     Route: 048
  3. POLYFUL [Concomitant]
     Route: 048
  4. PROTECADIN [Concomitant]
     Route: 048
  5. KEPPRA [Suspect]
     Route: 048
  6. LAMICTAL [Concomitant]
     Route: 048
  7. DEPAKENE [Concomitant]
     Route: 048
  8. LAC-B [Concomitant]
     Route: 048

REACTIONS (1)
  - NEPHROTIC SYNDROME [None]
